FAERS Safety Report 12587123 (Version 2)
Quarter: 2016Q3

REPORT INFORMATION
  Report Type: Spontaneous
  Country: DE (occurrence: DE)
  Receive Date: 20160725
  Receipt Date: 20160808
  Transmission Date: 20161109
  Serious: Yes (Hospitalization)
  Sender: FDA-Public Use
  Company Number: DE-EMD SERONO-8096584

PATIENT
  Age: 6 Year
  Sex: Male
  Weight: 26 kg

DRUGS (2)
  1. SAIZEN [Suspect]
     Active Substance: SOMATROPIN
     Indication: GROWTH HORMONE DEFICIENCY
     Route: 058
     Dates: start: 200210
  2. VITAMIN D                          /00107901/ [Concomitant]
     Active Substance: ERGOCALCIFEROL
     Indication: VITAMIN D DEFICIENCY
     Route: 048

REACTIONS (1)
  - Congenital scoliosis [Unknown]

NARRATIVE: CASE EVENT DATE: 200810
